FAERS Safety Report 6863118-X (Version None)
Quarter: 2010Q3

REPORT INFORMATION
  Report Type: 
  Country: None (occurrence: None)
  Receive Date: 20100719
  Receipt Date: 20100708
  Transmission Date: 20110219
  Serious: Yes (Hospitalization, Other)
  Sender: FDA-Public Use
  Company Number: 015271

PATIENT
  Sex: Male

DRUGS (9)
  1. CERTOLIZUMAB PEGOL (CERTOLIZUMAB PEGOL) [Suspect]
     Indication: RHEUMATOID ARTHRITIS
     Dosage: 400 MG 1X/MONTH SUBCUTANEOUS
     Route: 058
     Dates: start: 20030826, end: 20091212
  2. METHOTREXTE [Concomitant]
  3. FOLIC ACID [Concomitant]
  4. RAMIPRIL [Concomitant]
  5. ATENOLOL [Concomitant]
  6. ATORVASTATIN [Concomitant]
  7. METFORMIN HCL [Concomitant]
  8. FLUCOXACILLIN [Concomitant]
  9. PENCILLIN V /00001801/ [Concomitant]

REACTIONS (6)
  - CELLULITIS [None]
  - CONDITION AGGRAVATED [None]
  - DISEASE COMPLICATION [None]
  - ECZEMA [None]
  - MYOCARDIAL ISCHAEMIA [None]
  - THERAPEUTIC RESPONSE DECREASED [None]
